FAERS Safety Report 5401085-6 (Version None)
Quarter: 2007Q3

REPORT INFORMATION
  Report Type: 
  Country: None (occurrence: None)
  Receive Date: 20070731
  Receipt Date: 20070725
  Transmission Date: 20080115
  Serious: Yes (Other)
  Sender: FDA-Public Use
  Company Number: SE-JNJFOC-20070404222

PATIENT
  Age: 3 Decade
  Sex: Male

DRUGS (3)
  1. CONCERTA [Suspect]
     Indication: DRUG USE FOR UNKNOWN INDICATION
     Route: 048
  2. SERTRALIN [Concomitant]
  3. CISORDINOL [Concomitant]

REACTIONS (1)
  - CONVULSION [None]
